FAERS Safety Report 8244987-8 (Version None)
Quarter: 2012Q1

REPORT INFORMATION
  Report Type: 
  Country: None (occurrence: None)
  Receive Date: 20120329
  Receipt Date: 20120322
  Transmission Date: 20120608
  Serious: Yes (Hospitalization)
  Sender: FDA-Public Use
  Company Number: LB-ABBOTT-12P-093-0917924-00

PATIENT
  Sex: Female
  Weight: 61 kg

DRUGS (3)
  1. DULCOLAX [Concomitant]
     Indication: PRODUCT USED FOR UNKNOWN INDICATION
     Route: 048
  2. HUMIRA [Suspect]
     Indication: CROHN'S DISEASE
     Route: 058
     Dates: start: 20110606, end: 20120303
  3. FENOFIBRATE [Concomitant]
     Indication: BLOOD TRIGLYCERIDES
     Route: 048

REACTIONS (4)
  - APHASIA [None]
  - CHEST PAIN [None]
  - DYSPNOEA [None]
  - ABDOMINAL PAIN [None]
